FAERS Safety Report 11837216 (Version 3)
Quarter: 2016Q2

REPORT INFORMATION
  Report Type: Spontaneous
  Country: US (occurrence: US)
  Receive Date: 20151215
  Receipt Date: 20160427
  Transmission Date: 20160815
  Serious: No
  Sender: FDA-Public Use
  Company Number: US-PFIZER INC-2015422469

PATIENT
  Age: 86 Year
  Sex: Female

DRUGS (34)
  1. BUSPIRONE [Concomitant]
     Active Substance: BUSPIRONE HYDROCHLORIDE
     Indication: ANXIETY
     Dosage: 10MG ONCE IN THE MORNING AND ONCE AT NIGHT
     Route: 048
  2. PROBIOTIC [Concomitant]
     Active Substance: PROBIOTICS NOS
     Dosage: UNK, 1X/DAY
     Dates: start: 20140521, end: 20150325
  3. VENLAFAXINE ER [Concomitant]
     Active Substance: VENLAFAXINE HYDROCHLORIDE
     Dosage: 150 MG, 1X/DAY
     Dates: start: 20140521
  4. ASA [Concomitant]
     Active Substance: ASPIRIN
     Dosage: 81 MG, 1X/DAY
     Route: 048
     Dates: start: 20140521
  5. SYSTANE (HYPROMELLOSE 2910 (4000 MPA.S)) [Concomitant]
     Active Substance: HYPROMELLOSE 2910 (4000 MPA.S)
     Dosage: UNK (0.4 0.39)
     Dates: start: 20150815
  6. CLARITIN [Concomitant]
     Active Substance: LORATADINE
     Dosage: UNK, 1X/DAY
     Dates: start: 20151117
  7. ALLEGRA [Concomitant]
     Active Substance: FEXOFENADINE HYDROCHLORIDE
     Dosage: UNK, 1X/DAY
     Dates: start: 20151117
  8. ADVAIR HFA [Concomitant]
     Active Substance: FLUTICASONE PROPIONATE\SALMETEROL XINAFOATE
     Dosage: [FLUTICASONE PROPIONATE, 250/SALMETEROL XINAFOATE, 50] ONE PUFF IN THE MORNING AND ONE PUFF AT NIGHT
     Dates: start: 20150908
  9. ZYRTEC [Concomitant]
     Active Substance: CETIRIZINE HYDROCHLORIDE
     Indication: HYPERSENSITIVITY
     Dosage: 10MG DAILY AS NEEDED
     Route: 048
  10. CLONAZEPAM. [Concomitant]
     Active Substance: CLONAZEPAM
     Dosage: UNK, DAILY (1-2 QHS )
     Dates: start: 20141007, end: 20150910
  11. MIRALAX [Concomitant]
     Active Substance: POLYETHYLENE GLYCOL 3350
     Dosage: UNK, AS NEEDED (QD)
     Dates: start: 20150910
  12. SIMVASTATIN. [Concomitant]
     Active Substance: SIMVASTATIN
     Indication: BLOOD CHOLESTEROL INCREASED
     Dosage: 20MG AT BEDTIME
     Route: 048
  13. PRESERVISION [Concomitant]
     Active Substance: MINERALS\VITAMINS
     Dosage: UNK, 2X/DAY
     Dates: start: 20140521
  14. TRAZODONE [Concomitant]
     Active Substance: TRAZODONE HYDROCHLORIDE
     Dosage: 50 MG, 1X/DAY (QHS)
  15. FLUTICASONE [Concomitant]
     Active Substance: FLUTICASONE\FLUTICASONE PROPIONATE
     Dosage: UNK, 1X/DAY
     Dates: start: 20141215, end: 20150325
  16. STOOL SOFTENER [Concomitant]
     Active Substance: DOCUSATE CALCIUM
     Dosage: UNK, 1X/DAY
     Dates: start: 20150325
  17. BUSPAR [Concomitant]
     Active Substance: BUSPIRONE HYDROCHLORIDE
     Dosage: 10 MG, 2X/DAY
     Dates: start: 20150325
  18. SIMVASTATIN. [Concomitant]
     Active Substance: SIMVASTATIN
     Dosage: 20 MG, 1X/DAY
     Dates: start: 20140521
  19. LEVOTHYROXINE. [Concomitant]
     Active Substance: LEVOTHYROXINE
     Indication: THYROID DISORDER
     Dosage: 88 UG, 1X/DAY
     Route: 048
  20. LYRICA [Suspect]
     Active Substance: PREGABALIN
     Indication: FIBROMYALGIA
     Dosage: 150 MG, ONE EVERY MORNING AND 2 EVERY EVENING
     Route: 048
     Dates: start: 20140521
  21. CLONAZEPAM. [Concomitant]
     Active Substance: CLONAZEPAM
     Dosage: 1 MG, DAILY (QHS)
     Route: 048
     Dates: start: 20150910
  22. ASPIRIN. [Concomitant]
     Active Substance: ASPIRIN
     Dosage: 81MG ONCE A DAY AT NIGHT
     Route: 048
  23. OXYBUTYNIN ER [Concomitant]
     Active Substance: OXYBUTYNIN
     Dosage: 10 MG, 1X/DAY
     Dates: start: 20140521
  24. LYRICA [Suspect]
     Active Substance: PREGABALIN
     Indication: OSTEOPOROSIS
  25. LEVOTHYROXINE. [Concomitant]
     Active Substance: LEVOTHYROXINE
     Dosage: 75 UG, 1X/DAY
     Dates: start: 20140521, end: 20140805
  26. AMLODIPINE [Concomitant]
     Active Substance: AMLODIPINE BESYLATE
     Dosage: 2.5 MG, 1X/DAY
     Dates: start: 20141007, end: 20150209
  27. OXYBUTIN [Concomitant]
     Active Substance: OXYBUTYNIN
     Indication: MICTURITION DISORDER
     Dosage: 10MG ONCE AT BEDTIME
     Route: 048
  28. ADVAIR HFA [Concomitant]
     Active Substance: FLUTICASONE PROPIONATE\SALMETEROL XINAFOATE
     Indication: CHRONIC OBSTRUCTIVE PULMONARY DISEASE
     Dosage: [FLUTICASONE PROPIONATE, 100/SALMETEROL XINAFOATE, 50], 2X/DAY
     Dates: start: 20141007, end: 20150908
  29. CAL VIT D [Concomitant]
     Dosage: UNK, 2X/DAY
     Dates: start: 20140521
  30. CLONAZEPAM. [Concomitant]
     Active Substance: CLONAZEPAM
     Indication: RESTLESS LEGS SYNDROME
     Dosage: 1MG 1 TO 2 TABLETS AT BEDTIME
     Route: 048
  31. VENLAFAXINE [Concomitant]
     Active Substance: VENLAFAXINE HYDROCHLORIDE
     Indication: DEPRESSION
     Dosage: 150 MG, 1X/DAY
     Route: 048
  32. PANTOPRAZOLE [Concomitant]
     Active Substance: PANTOPRAZOLE SODIUM
     Indication: GASTROOESOPHAGEAL REFLUX DISEASE
     Dosage: 40 MG, 1X/DAY
     Route: 048
     Dates: start: 20140521
  33. LEVOTHYROXINE. [Concomitant]
     Active Substance: LEVOTHYROXINE
     Dosage: 80 UG, UNK
     Dates: start: 20140805
  34. TRAZODONE [Concomitant]
     Active Substance: TRAZODONE HYDROCHLORIDE
     Dosage: 100 MG, 1X/DAY (50 MG, 2 QHS)
     Dates: start: 20140521, end: 20141007

REACTIONS (1)
  - Pain [Not Recovered/Not Resolved]
